FAERS Safety Report 7172700-4 (Version None)
Quarter: 2010Q4

REPORT INFORMATION
  Report Type: 
  Country: None (occurrence: None)
  Receive Date: 20101217
  Receipt Date: 20100226
  Transmission Date: 20110411
  Serious: Yes (Hospitalization)
  Sender: FDA-Public Use
  Company Number: US-AMGEN-QUU390534

PATIENT

DRUGS (13)
  1. ENBREL [Suspect]
     Indication: PSORIASIS
     Dosage: 50 MG, QWK
     Route: 058
     Dates: start: 20040114
  2. METFORMIN [Concomitant]
     Dosage: 500 MG, BID
     Dates: start: 20090219
  3. PIOGLITAZONE HCL [Concomitant]
     Dosage: 45 MG, QD
     Dates: start: 20090219
  4. INSULIN ASPART [Concomitant]
     Dosage: 45 IU, UNK
     Dates: start: 20090219
  5. LISINOPRIL [Concomitant]
     Dosage: 40 MG, QD
     Dates: start: 20090219
  6. DICLOFENAC [Concomitant]
     Dosage: 75 MG, BID
     Dates: start: 20090219
  7. GABAPENTIN [Concomitant]
     Dosage: 600 MG, TID
     Dates: start: 20080909
  8. RALOXIFEN HCL [Concomitant]
     Dosage: 60 MG, QD
     Dates: start: 20090521
  9. TIZANIDINE [Concomitant]
     Dosage: 2 MG, UNK
     Dates: start: 20090227
  10. EXENATIDE [Concomitant]
     Dosage: 10 MG, UNK
     Dates: start: 20091103
  11. FLUTICASONE/SALMETEROL [Concomitant]
     Dosage: UNK UNK, UNK
     Dates: start: 20090715
  12. PROCATEROL HCL [Concomitant]
     Dosage: UNK UNK, PRN
     Dates: start: 20090715
  13. COMBIVENT [Concomitant]
     Dosage: UNK UNK, UNK
     Dates: start: 20090715

REACTIONS (2)
  - ASTHMA [None]
  - DRUG INEFFECTIVE [None]
